FAERS Safety Report 23602995 (Version 1)
Quarter: 2024Q1

REPORT INFORMATION
  Report Type: Spontaneous
  Country: US (occurrence: US)
  Receive Date: 20240306
  Receipt Date: 20240306
  Transmission Date: 20240410
  Serious: No
  Sender: FDA-Public Use
  Company Number: US-ABBVIE-5668820

PATIENT
  Sex: Female
  Weight: 63.956 kg

DRUGS (1)
  1. HUMIRA [Suspect]
     Active Substance: ADALIMUMAB
     Indication: Rheumatoid arthritis
     Dosage: DURATION TEXT: 4  AND A HALF MONTH
     Route: 058

REACTIONS (4)
  - COVID-19 [Unknown]
  - Depression [Unknown]
  - Inflammation [Unknown]
  - Drug ineffective [Unknown]
